FAERS Safety Report 11102408 (Version 1)
Quarter: 2015Q2

REPORT INFORMATION
  Report Type: Spontaneous
  Country: US (occurrence: US)
  Receive Date: 20150511
  Receipt Date: 20150511
  Transmission Date: 20150821
  Serious: No
  Sender: FDA-Public Use
  Company Number: US-TEVA-560435ACC

PATIENT
  Age: 24 Year
  Sex: Female
  Weight: 69.01 kg

DRUGS (2)
  1. PARAGARD T 380A [Suspect]
     Active Substance: COPPER
     Indication: CONTRACEPTION
     Route: 015
     Dates: start: 20141124, end: 20141127
  2. MULTIVITAMIN [Concomitant]
     Active Substance: VITAMINS
     Indication: SUPPLEMENTATION THERAPY

REACTIONS (2)
  - Device expulsion [Recovered/Resolved]
  - Metrorrhagia [Recovered/Resolved]

NARRATIVE: CASE EVENT DATE: 20150427
